FAERS Safety Report 17480590 (Version 1)
Quarter: 2020Q1

REPORT INFORMATION
  Report Type: Spontaneous
  Country: DE (occurrence: DE)
  Receive Date: 20200301
  Receipt Date: 20200301
  Transmission Date: 20200409
  Serious: Yes (Congenital Anomaly)
  Sender: FDA-Public Use
  Company Number: NVSC2020DE052665

PATIENT
  Age: 1 Day
  Sex: Male
  Weight: 3 kg

DRUGS (8)
  1. FOLSAEURE [Concomitant]
     Active Substance: FOLIC ACID
     Indication: FOETAL EXPOSURE DURING PREGNANCY
     Dosage: 5 MG, QD (0. - 12. GESTATIONAL WEEK)
     Route: 064
  2. SEROQUEL [Suspect]
     Active Substance: QUETIAPINE FUMARATE
     Indication: FOETAL EXPOSURE DURING PREGNANCY
     Dosage: 225 MG, QD(0. - 38.3. GESTATIONAL WEEK)
     Route: 064
     Dates: start: 20180803, end: 20190429
  3. VITAMIN D NOS [Concomitant]
     Active Substance: VITAMIN D NOS
     Indication: FOETAL EXPOSURE DURING PREGNANCY
     Dosage: 2000 I.E, QD (7. - 8. GESTATIONAL WEEK)
     Route: 064
  4. CLEXANE [Concomitant]
     Active Substance: ENOXAPARIN SODIUM
     Indication: FOETAL EXPOSURE DURING PREGNANCY
     Dosage: 4000 UNK, QD (4. - 38.2. GESTATIONAL WEEK)
     Route: 064
  5. METFORMIN [Suspect]
     Active Substance: METFORMIN HYDROCHLORIDE
     Indication: FOETAL EXPOSURE DURING PREGNANCY
     Dosage: 1500 MG, QD (0. - 12. GESTATIONAL WEEK)
     Route: 064
  6. SEROQUEL [Suspect]
     Active Substance: QUETIAPINE FUMARATE
     Dosage: 300 MG, QD (DOSAGE WAS INCREASED FROM 225 MG/D TO 300 MG/D DURING PREGNANCY)
     Route: 064
     Dates: start: 20180803, end: 20190429
  7. PREDNISOLON [Concomitant]
     Active Substance: PREDNISOLONE
     Indication: FOETAL EXPOSURE DURING PREGNANCY
     Dosage: 5 MG, QD (0. - 7. GESTATIONAL WEEK)
     Route: 064
  8. EUTHYROX [Concomitant]
     Active Substance: LEVOTHYROXINE SODIUM
     Indication: FOETAL EXPOSURE DURING PREGNANCY
     Dosage: 112 UG, QD (0. - 38.3. GESTATIONAL WEEK)
     Route: 064
     Dates: start: 20180803, end: 20190429

REACTIONS (4)
  - Atrial septal defect [Recovered/Resolved]
  - Bicuspid aortic valve [Not Recovered/Not Resolved]
  - Hypoplastic left heart syndrome [Recovered/Resolved with Sequelae]
  - Foetal exposure during pregnancy [Unknown]

NARRATIVE: CASE EVENT DATE: 20190429
